FAERS Safety Report 21559857 (Version 2)
Quarter: 2023Q2

REPORT INFORMATION
  Report Type: Spontaneous
  Country: JP (occurrence: JP)
  Receive Date: 20221107
  Receipt Date: 20230524
  Transmission Date: 20230721
  Serious: Yes (Hospitalization, Other)
  Sender: FDA-Public Use
  Company Number: JP-GLAXOSMITHKLINE-JP2022JPN157336

PATIENT

DRUGS (1)
  1. LAMICTAL [Suspect]
     Active Substance: LAMOTRIGINE
     Indication: Bipolar disorder
     Dosage: UNK

REACTIONS (10)
  - Drug reaction with eosinophilia and systemic symptoms [Unknown]
  - Rash [Recovering/Resolving]
  - Fulminant type 1 diabetes mellitus [Unknown]
  - Drug eruption [Unknown]
  - Oral mucosa erosion [Unknown]
  - Coating in mouth [Unknown]
  - Erythema [Unknown]
  - Skin exfoliation [Unknown]
  - Liver disorder [Unknown]
  - Ketosis [Unknown]
